FAERS Safety Report 8463224-2 (Version None)
Quarter: 2012Q2

REPORT INFORMATION
  Report Type: 
  Country: None (occurrence: None)
  Receive Date: 20120625
  Receipt Date: 20120614
  Transmission Date: 20120825
  Serious: Yes (Hospitalization)
  Sender: FDA-Public Use
  Company Number: US-ACTELION-A-US2012-67455

PATIENT

DRUGS (3)
  1. TRACLEER [Suspect]
     Indication: PULMONARY ARTERIAL HYPERTENSION
     Dosage: UNK
     Route: 048
     Dates: start: 20100723
  2. CALCIUM CHANNEL BLOCKERS [Concomitant]
  3. SILDENAFIL [Concomitant]

REACTIONS (3)
  - TREATMENT NONCOMPLIANCE [None]
  - DRUG INTOLERANCE [None]
  - VIRAL INFECTION [None]
